FAERS Safety Report 4989955-4 (Version None)
Quarter: 2006Q2

REPORT INFORMATION
  Report Type: 
  Country: None (occurrence: None)
  Receive Date: 20060427
  Receipt Date: 20060418
  Transmission Date: 20061013
  Serious: Yes (Other)
  Sender: FDA-Public Use
  Company Number: 2006-03-0689

PATIENT
  Age: 77 Year
  Sex: Female
  Weight: 52 kg

DRUGS (3)
  1. VIRAFERONPEG [Suspect]
     Indication: HEPATITIS C
     Dosage: 48 UG QWK SUBCUTANEOUS
     Route: 058
     Dates: start: 20050927
  2. EUPANTOL                     (PANTOPRAZOLE SODIUM) [Concomitant]
  3. ACETAMINOPHEN [Concomitant]

REACTIONS (6)
  - CONVULSION [None]
  - DRUG INTOLERANCE [None]
  - HEADACHE [None]
  - HYPERTENSION [None]
  - ILL-DEFINED DISORDER [None]
  - THROMBOCYTOPENIA [None]
